FAERS Safety Report 4478657-9 (Version None)
Quarter: 2004Q4

REPORT INFORMATION
  Report Type: 
  Country: None (occurrence: None)
  Receive Date: 20040923
  Receipt Date: 20040527
  Transmission Date: 20050328
  Serious: No
  Sender: FDA-Public Use
  Company Number: USA040568708

PATIENT
  Sex: Female

DRUGS (2)
  1. FORTEO [Suspect]
  2. SALINE (SODIUM CHLORIDE) [Concomitant]

REACTIONS (1)
  - MEDICATION ERROR [None]
